FAERS Safety Report 24223399 (Version 1)
Quarter: 2024Q3

REPORT INFORMATION
  Report Type: Spontaneous
  Country: FR (occurrence: FR)
  Receive Date: 20240819
  Receipt Date: 20240819
  Transmission Date: 20241016
  Serious: Yes (Other)
  Sender: MYLAN
  Company Number: FR-002147023-NVSC2024FR121611

PATIENT
  Sex: Female
  Weight: 75 kg

DRUGS (2)
  1. METHOTREXATE [Suspect]
     Active Substance: METHOTREXATE
     Indication: Ankylosing spondylitis
     Dosage: 15 MILLIGRAM, QW
     Route: 058
     Dates: end: 20240620
  2. COSENTYX [Suspect]
     Active Substance: SECUKINUMAB
     Indication: Ankylosing spondylitis
     Dosage: 150 MILLIGRAM, MONTHLY (150 MG, Q4W (EVERY 4 WEEKS)
     Route: 058
     Dates: start: 202208

REACTIONS (6)
  - Glomerulonephropathy [Unknown]
  - Proteinuria [Unknown]
  - Urine albumin/creatinine ratio abnormal [Unknown]
  - Creatinine renal clearance decreased [Unknown]
  - Blood immunoglobulin G abnormal [Unknown]
  - Monoclonal gammopathy [Unknown]
